FAERS Safety Report 9861895 (Version 4)
Quarter: 2014Q1

REPORT INFORMATION
  Report Type: Spontaneous
  Country: DE (occurrence: DE)
  Receive Date: 20140203
  Receipt Date: 20140331
  Transmission Date: 20141002
  Serious: Yes (Hospitalization, Other)
  Sender: FDA-Public Use
  Company Number: DE-JNJFOC-20140116581

PATIENT
  Age: 63 Year
  Sex: Male
  Weight: 110 kg

DRUGS (15)
  1. XARELTO [Suspect]
     Indication: EMBOLISM VENOUS
     Route: 048
     Dates: start: 20140101
  2. XARELTO [Suspect]
     Indication: EMBOLISM VENOUS
     Route: 048
     Dates: start: 201311, end: 201312
  3. XARELTO [Suspect]
     Indication: DEEP VEIN THROMBOSIS
     Route: 048
     Dates: start: 20140101
  4. XARELTO [Suspect]
     Indication: DEEP VEIN THROMBOSIS
     Route: 048
     Dates: start: 201311, end: 201312
  5. TORASEMID [Concomitant]
     Route: 065
  6. METOPROLOL [Concomitant]
     Route: 065
  7. TELMISARTAN [Concomitant]
     Route: 065
  8. MOXONIDIN [Concomitant]
     Dosage: 0.3. 1-0-1
     Route: 065
  9. EZETIMIBE W/SIMVASTATIN [Concomitant]
     Dosage: 10/40 MG, 0-0-1
     Route: 065
  10. METFORMIN [Concomitant]
     Route: 065
  11. BUDESONIDE W/FORMOTEROL FUMARATE [Concomitant]
     Dosage: 320/0,1-0-1
     Route: 065
  12. TIOTROPIUM BROMIDE [Concomitant]
     Route: 065
  13. PHENPROCOUMON [Concomitant]
     Route: 065
  14. ENOXAPARIN [Concomitant]
     Route: 058
  15. MARCUMAR [Concomitant]
     Route: 065
     Dates: start: 20131209, end: 20140101

REACTIONS (4)
  - Pulmonary embolism [Unknown]
  - Deep vein thrombosis [Unknown]
  - Dyspnoea [Unknown]
  - Pulmonary embolism [Unknown]
